FAERS Safety Report 13188291 (Version 1)
Quarter: 2017Q1

REPORT INFORMATION
  Report Type: Spontaneous
  Country: US (occurrence: US)
  Receive Date: 20170206
  Receipt Date: 20170206
  Transmission Date: 20170428
  Serious: Yes (Hospitalization, Other)
  Sender: FDA-Public Use
  Company Number: US-DRREDDYS-USA/USA/17/0086915

PATIENT
  Age: 60 Year
  Sex: Male

DRUGS (4)
  1. MEROPENEM. [Suspect]
     Active Substance: MEROPENEM
     Indication: LACTOBACILLUS INFECTION
     Route: 065
  2. CYCLOSPORINE. [Suspect]
     Active Substance: CYCLOSPORINE
     Indication: IMMUNOSUPPRESSION
     Route: 065
  3. PROBIOTIC [Suspect]
     Active Substance: PROBIOTICS NOS
     Indication: PRODUCT USED FOR UNKNOWN INDICATION
     Route: 065
  4. SIROLIMUS. [Suspect]
     Active Substance: SIROLIMUS
     Indication: IMMUNOSUPPRESSION
     Route: 065

REACTIONS (13)
  - Enterococcal infection [Recovering/Resolving]
  - Treatment failure [Unknown]
  - Lactobacillus infection [Recovering/Resolving]
  - White blood cell count increased [Recovered/Resolved]
  - Escherichia infection [Recovering/Resolving]
  - Drug resistance [Unknown]
  - Abdominal discomfort [Unknown]
  - Kidney enlargement [Unknown]
  - Respiratory failure [Unknown]
  - Nephrectomy [Unknown]
  - Septic shock [Recovering/Resolving]
  - Abdominal abscess [Recovering/Resolving]
  - Pyrexia [Recovered/Resolved]

NARRATIVE: CASE EVENT DATE: 201406
